FAERS Safety Report 20382830 (Version 1)
Quarter: 2022Q1

REPORT INFORMATION
  Report Type: Spontaneous
  Country: US (occurrence: None)
  Receive Date: 20220126
  Receipt Date: 20220126
  Transmission Date: 20220423
  Serious: Yes (Other)
  Sender: FDA-Public Use
  Company Number: None

PATIENT
  Sex: Female

DRUGS (2)
  1. NEXPLANON [Suspect]
     Active Substance: ETONOGESTREL
     Indication: Product used for unknown indication
     Route: 058
     Dates: start: 20210729, end: 20211214
  2. NEXPLANON [Concomitant]
     Active Substance: ETONOGESTREL
     Indication: Product used for unknown indication
     Dates: start: 20210729, end: 20211214

REACTIONS (2)
  - Pruritus [None]
  - Complication associated with device [None]

NARRATIVE: CASE EVENT DATE: 20210729
